FAERS Safety Report 8601754-0 (Version None)
Quarter: 2012Q3

REPORT INFORMATION
  Report Type: 
  Country: None (occurrence: None)
  Receive Date: 20120817
  Receipt Date: 20120309
  Transmission Date: 20120928
  Serious: Yes (Hospitalization)
  Sender: FDA-Public Use
  Company Number: US-BRISTOL-MYERS SQUIBB COMPANY-16446460

PATIENT
  Age: 74 Year
  Sex: Male

DRUGS (5)
  1. DOXYCYCLINE HCL [Concomitant]
  2. SPRYCEL [Suspect]
     Dosage: STARTED 3 YEARS AGO
  3. ASPIRIN [Concomitant]
  4. METOPROLOL TARTRATE [Concomitant]
     Indication: BLOOD PRESSURE
  5. PRAVASTATIN SODIUM [Suspect]
     Indication: BLOOD CHOLESTEROL

REACTIONS (4)
  - FLUID RETENTION [None]
  - RESPIRATORY TRACT INFECTION [None]
  - DYSPNOEA [None]
  - MUSCLE DISORDER [None]
